FAERS Safety Report 14543565 (Version 1)
Quarter: 2018Q1

REPORT INFORMATION
  Report Type: Spontaneous
  Country: US (occurrence: US)
  Receive Date: 20180216
  Receipt Date: 20180216
  Transmission Date: 20180509
  Serious: No
  Sender: FDA-Public Use
  Company Number: US-TEVA-2018-US-850638

PATIENT
  Sex: Female
  Weight: 85.73 kg

DRUGS (2)
  1. CENTRUM SILVER WOMEN 50 PLUS PFIZER [Suspect]
     Active Substance: MINERALS\VITAMINS
     Dosage: 1 DOSAGE FORMS DAILY;
     Route: 048
     Dates: start: 201712, end: 20171228
  2. PROAIR HFA [Suspect]
     Active Substance: ALBUTEROL SULFATE
     Route: 065

REACTIONS (1)
  - Drug hypersensitivity [Unknown]
